FAERS Safety Report 5901807-1 (Version None)
Quarter: 2008Q3

REPORT INFORMATION
  Report Type: 
  Country: None (occurrence: None)
  Receive Date: 20080925
  Receipt Date: 20080918
  Transmission Date: 20090109
  Serious: Yes (Other)
  Sender: FDA-Public Use
  Company Number: 1000001015

PATIENT
  Sex: Male

DRUGS (1)
  1. LEXAPRO [Suspect]
     Indication: ALCOHOL USE

REACTIONS (1)
  - ALCOHOL POISONING [None]
